FAERS Safety Report 4362866-3 (Version None)
Quarter: 2004Q2

REPORT INFORMATION
  Report Type: 
  Country: None (occurrence: None)
  Receive Date: 20040517
  Receipt Date: 20040330
  Transmission Date: 20050107
  Serious: No
  Sender: FDA-Public Use
  Company Number: S04-USA-01829-01

PATIENT
  Sex: Male

DRUGS (10)
  1. NAMENDA [Suspect]
     Indication: DEMENTIA ALZHEIMER'S TYPE
     Dosage: 10 MG QD PO
     Route: 048
     Dates: start: 20040308, end: 20040314
  2. NAMENDA [Suspect]
     Indication: DEMENTIA ALZHEIMER'S TYPE
     Dosage: 15 MG QD PO
     Route: 048
     Dates: start: 20040315, end: 20040321
  3. NAMENDA [Suspect]
     Indication: DEMENTIA ALZHEIMER'S TYPE
     Dosage: 10 MG BID PO
     Route: 048
     Dates: start: 20040322
  4. NAMENDA [Suspect]
     Indication: DEMENTIA ALZHEIMER'S TYPE
     Dosage: 5 MG BID PO
     Route: 048
     Dates: start: 20040301, end: 20040307
  5. ASPIRIN [Concomitant]
  6. ATENOLOL [Concomitant]
  7. REMINYL [Concomitant]
  8. RISPERDAL [Concomitant]
  9. TAGAMET [Concomitant]
  10. VITAMIN B COMPLEX CAP [Concomitant]

REACTIONS (2)
  - MUSCULOSKELETAL STIFFNESS [None]
  - NECK PAIN [None]
